FAERS Safety Report 9121266 (Version 1)
Quarter: 2013Q1

REPORT INFORMATION
  Report Type: Spontaneous
  Country: US (occurrence: US)
  Receive Date: 20130225
  Receipt Date: 20130225
  Transmission Date: 20140127
  Serious: No
  Sender: FDA-Public Use
  Company Number: US-009507513-1302USA010487

PATIENT
  Age: 6 Year
  Sex: Female

DRUGS (2)
  1. ASMANEX TWISTHALER [Suspect]
     Indication: ASTHMA
     Dosage: 110 DF, QD
     Route: 055
  2. ASMANEX TWISTHALER [Suspect]
     Dosage: 220 DF, TID
     Route: 055

REACTIONS (3)
  - Influenza like illness [Recovering/Resolving]
  - Cough [Recovering/Resolving]
  - Sinusitis [Recovering/Resolving]
